FAERS Safety Report 7470688-X (Version None)
Quarter: 2011Q2

REPORT INFORMATION
  Report Type: 
  Country: None (occurrence: None)
  Receive Date: 20110510
  Receipt Date: 20110406
  Transmission Date: 20111010
  Serious: No
  Sender: FDA-Public Use
  Company Number: US-BAYER-2011-034206

PATIENT
  Sex: Female

DRUGS (1)
  1. ALKA-SELTZER ORIGINAL [Suspect]

REACTIONS (3)
  - PAIN [None]
  - DIZZINESS [None]
  - NAUSEA [None]
